FAERS Safety Report 9813844 (Version 2)
Quarter: 2014Q1

REPORT INFORMATION
  Report Type: Spontaneous
  Country: US (occurrence: US)
  Receive Date: 20140113
  Receipt Date: 20140113
  Transmission Date: 20141002
  Serious: Yes (Hospitalization)
  Sender: FDA-Public Use
  Company Number: US-GILEAD-2010-0028544

PATIENT
  Age: 50 Year
  Sex: Male

DRUGS (7)
  1. TRUVADA [Suspect]
     Indication: HIV INFECTION
     Dates: start: 20090921, end: 20100325
  2. ATRIPLA [Concomitant]
     Indication: HIV INFECTION
     Dates: start: 20090908, end: 20090921
  3. SULFAMETHOXAZOLE/TRIMETHOPRIM [Concomitant]
     Indication: OPPORTUNISTIC INFECTION PROPHYLAXIS
     Dates: start: 20090715, end: 20100325
  4. ZITHROMAX [Concomitant]
     Indication: OPPORTUNISTIC INFECTION PROPHYLAXIS
     Dates: start: 20090615
  5. REYATAZ [Concomitant]
     Indication: HIV INFECTION
     Dates: start: 20090921, end: 20100325
  6. NORVIR [Concomitant]
     Indication: HIV INFECTION
     Dates: start: 20090921, end: 20100325
  7. MEPRON [Concomitant]
     Indication: OPPORTUNISTIC INFECTION PROPHYLAXIS
     Dates: start: 20100325

REACTIONS (2)
  - Blood creatinine increased [Unknown]
  - Glomerular filtration rate decreased [Unknown]
